FAERS Safety Report 5535838-0 (Version None)
Quarter: 2007Q4

REPORT INFORMATION
  Report Type: 
  Country: None (occurrence: None)
  Receive Date: 20071204
  Receipt Date: 20071115
  Transmission Date: 20080405
  Serious: Yes (Hospitalization)
  Sender: FDA-Public Use
  Company Number: TPA2007A02366

PATIENT
  Age: 87 Year
  Sex: Male

DRUGS (1)
  1. ACTOS [Suspect]
     Indication: TYPE 2 DIABETES MELLITUS
     Dosage: 15 MG, QD, PER ORAL; PER ORAL
     Route: 048
     Dates: start: 20070501

REACTIONS (1)
  - OEDEMA PERIPHERAL [None]
